FAERS Safety Report 7743037-7 (Version None)
Quarter: 2011Q3

REPORT INFORMATION
  Report Type: 
  Country: None (occurrence: None)
  Receive Date: 20110912
  Receipt Date: 20100920
  Transmission Date: 20111222
  Serious: No
  Sender: FDA-Public Use
  Company Number: US-BAYER-201034492NA

PATIENT
  Age: 26 Year
  Sex: Female

DRUGS (2)
  1. MIRENA [Suspect]
     Indication: CONTRACEPTION
     Dosage: 20 MCG/24HR, CONT
     Route: 015
     Dates: start: 20091101
  2. MIRENA [Suspect]
     Indication: ENDOMETRIAL DISORDER

REACTIONS (4)
  - OVARIAN CYST [None]
  - PELVIC PAIN [None]
  - ABDOMINAL PAIN [None]
  - COITAL BLEEDING [None]
